FAERS Safety Report 23637070 (Version 1)
Quarter: 2024Q1

REPORT INFORMATION
  Report Type: Spontaneous
  Country: CA (occurrence: CA)
  Receive Date: 20240315
  Receipt Date: 20240315
  Transmission Date: 20240410
  Serious: Yes (Other)
  Sender: FDA-Public Use
  Company Number: CA-TEVA-VS-3167838

PATIENT
  Age: 61 Year
  Sex: Female

DRUGS (2)
  1. METHOTREXATE SODIUM [Suspect]
     Active Substance: METHOTREXATE SODIUM
     Indication: Sarcoidosis
     Route: 065
  2. MYCOPHENOLATE MOFETIL [Concomitant]
     Route: 065

REACTIONS (3)
  - Femur fracture [Unknown]
  - Drug ineffective for unapproved indication [Unknown]
  - Off label use [Unknown]
